FAERS Safety Report 21206362 (Version 1)
Quarter: 2022Q3

REPORT INFORMATION
  Report Type: Spontaneous
  Country: US (occurrence: None)
  Receive Date: 20220811
  Receipt Date: 20220811
  Transmission Date: 20221026
  Serious: No
  Sender: FDA-Public Use
  Company Number: None

PATIENT
  Age: 40 Year
  Sex: Female
  Weight: 116 kg

DRUGS (1)
  1. OCREVUS [Suspect]
     Active Substance: OCRELIZUMAB
     Indication: Multiple sclerosis
     Route: 041
     Dates: start: 20220801

REACTIONS (7)
  - Adverse drug reaction [None]
  - Ear discomfort [None]
  - Pharyngeal inflammation [None]
  - Speech disorder [None]
  - Dyspnoea [None]
  - Cough [None]
  - Infusion related reaction [None]

NARRATIVE: CASE EVENT DATE: 20220801
